FAERS Safety Report 13838348 (Version 1)
Quarter: 2017Q3

REPORT INFORMATION
  Report Type: Spontaneous
  Country: RO (occurrence: RO)
  Receive Date: 20170807
  Receipt Date: 20170807
  Transmission Date: 20171127
  Serious: Yes (Hospitalization, Disabling, Other)
  Sender: FDA-Public Use
  Company Number: RO-ABBVIE-17K-135-2057793-00

PATIENT
  Age: 70 Year
  Sex: Female
  Weight: 91.5 kg

DRUGS (1)
  1. DUODOPA [Suspect]
     Active Substance: CARBIDOPA\LEVODOPA
     Indication: PARKINSON^S DISEASE
     Dosage: MD-9ML??CR-4.2ML/H??ED-2.1ML
     Route: 050
     Dates: start: 20170720

REACTIONS (12)
  - Infection [Recovered/Resolved]
  - Pain [Not Recovered/Not Resolved]
  - Streptococcal infection [Unknown]
  - Abdominal pain [Recovering/Resolving]
  - Blood creatinine increased [Unknown]
  - Malaise [Recovered/Resolved]
  - Procedural pain [Recovered/Resolved]
  - Dyskinesia [Unknown]
  - Drug effect variable [Unknown]
  - Stoma site discharge [Recovering/Resolving]
  - Gait disturbance [Recovered/Resolved]
  - Muscle rigidity [Recovered/Resolved]

NARRATIVE: CASE EVENT DATE: 2017
